FAERS Safety Report 7219290-5 (Version None)
Quarter: 2011Q1

REPORT INFORMATION
  Report Type: 
  Country: None (occurrence: None)
  Receive Date: 20110111
  Receipt Date: 20101229
  Transmission Date: 20110831
  Serious: Yes (Other)
  Sender: FDA-Public Use
  Company Number: US-PFIZER INC-2010026678

PATIENT
  Sex: Male
  Weight: 99.32 kg

DRUGS (5)
  1. LYRICA [Suspect]
     Indication: FIBROMYALGIA
     Dosage: 100 MG, 3X/DAY
     Dates: start: 20100201
  2. LISINOPRIL [Concomitant]
     Dosage: UNK
  3. PREVACID [Concomitant]
     Dosage: UNK
  4. FLUOXETINE [Concomitant]
     Dosage: UNK
  5. ATRIPLA [Concomitant]
     Dosage: UNK

REACTIONS (6)
  - ENDODONTIC PROCEDURE [None]
  - AGITATION [None]
  - TOOTH REPAIR [None]
  - INSOMNIA [None]
  - MALAISE [None]
  - ENERGY INCREASED [None]
